FAERS Safety Report 7100589-8 (Version None)
Quarter: 2010Q4

REPORT INFORMATION
  Report Type: 
  Country: None (occurrence: None)
  Receive Date: 20101113
  Receipt Date: 20100223
  Transmission Date: 20110411
  Serious: No
  Sender: FDA-Public Use
  Company Number: US-ALLERGAN-1002274US

PATIENT
  Age: 56 Year
  Sex: Female

DRUGS (2)
  1. BOTOX COSMETIC [Suspect]
     Indication: SKIN WRINKLING
     Dosage: 24 UNITS, SINGLE
     Route: 030
     Dates: start: 20100204, end: 20100204
  2. BOTOX COSMETIC [Suspect]
     Dosage: 6 UNITS, SINGLE
     Route: 030
     Dates: start: 20100218, end: 20100218

REACTIONS (4)
  - ASTHENOPIA [None]
  - OROPHARYNGEAL PAIN [None]
  - PHARYNGEAL OEDEMA [None]
  - TONGUE DISORDER [None]
